FAERS Safety Report 7269529-5 (Version None)
Quarter: 2011Q1

REPORT INFORMATION
  Report Type: 
  Country: None (occurrence: None)
  Receive Date: 20110202
  Receipt Date: 20110119
  Transmission Date: 20110831
  Serious: Yes (Other)
  Sender: FDA-Public Use
  Company Number: US-SOLVAY-00211000551

PATIENT
  Age: 46 Year
  Sex: Male
  Weight: 136.36 kg

DRUGS (3)
  1. WARFARIN [Suspect]
     Indication: THROMBOSIS
     Dosage: DAILY DOSE:  UNKNOWN
     Route: 065
     Dates: start: 20110101
  2. ANDROGEL [Suspect]
     Indication: BLOOD TESTOSTERONE DECREASED
     Dosage: DAILY DOSE: 5 GRAM(S)
     Route: 062
     Dates: start: 20100801, end: 20101201
  3. ANDROGEL [Suspect]
     Dosage: DAILY DOSE: 2.5 GRAM(S)
     Route: 062
     Dates: start: 20101201

REACTIONS (6)
  - THROMBOSIS [None]
  - INSOMNIA [None]
  - MENISCUS LESION [None]
  - BLOOD TESTOSTERONE INCREASED [None]
  - ASTHENIA [None]
  - DRUG INEFFECTIVE [None]
